FAERS Safety Report 22033207 (Version 1)
Quarter: 2023Q1

REPORT INFORMATION
  Report Type: Spontaneous
  Country: US (occurrence: None)
  Receive Date: 20230222
  Receipt Date: 20230222
  Transmission Date: 20230418
  Serious: No
  Sender: FDA-Public Use
  Company Number: None

PATIENT
  Age: 59 Year
  Sex: Female
  Weight: 68.85 kg

DRUGS (1)
  1. MOUNJARO [Suspect]
     Active Substance: TIRZEPATIDE
     Indication: Diabetes mellitus
     Dosage: OTHER QUANTITY : 1 INJECTION(S);?OTHER FREQUENCY : ONCE A WEEK;?OTHER ROUTE : INJECTED IN ABDOMEN FA
     Route: 050
     Dates: start: 20221218, end: 20230215

REACTIONS (6)
  - Flatulence [None]
  - Abdominal distension [None]
  - Abdominal pain upper [None]
  - Gastrointestinal motility disorder [None]
  - Impaired work ability [None]
  - Quality of life decreased [None]

NARRATIVE: CASE EVENT DATE: 20230208
